FAERS Safety Report 16285370 (Version 1)
Quarter: 2019Q2

REPORT INFORMATION
  Report Type: Spontaneous
  Country: JP (occurrence: JP)
  Receive Date: 20190508
  Receipt Date: 20190508
  Transmission Date: 20190711
  Serious: Yes (Other)
  Sender: FDA-Public Use
  Company Number: JP-FRESENIUS KABI-FK201905154

PATIENT
  Age: 70 Year
  Sex: Male

DRUGS (3)
  1. BUPIVACAINE (MANUFACTURER UNKNOWN) [Suspect]
     Active Substance: BUPIVACAINE
     Indication: SPINAL ANAESTHESIA
     Dosage: 1.8 ML OF 0.5 PERCENT 3 MG/KG/H
     Route: 037
  2. BUPIVACAINE (MANUFACTURER UNKNOWN) [Suspect]
     Active Substance: BUPIVACAINE
     Dosage: 1.8 ML OF 0.5 PERCENT 0.5 MG/KG/H
     Route: 037
  3. PROPOFOL. [Concomitant]
     Active Substance: PROPOFOL
     Indication: ANALGESIC THERAPY
     Dosage: UNKNOWN
     Route: 065

REACTIONS (6)
  - Hypoxia [Recovered/Resolved]
  - Muscle rigidity [Recovered/Resolved]
  - Hyperreflexia [Recovered/Resolved]
  - Therapeutic response shortened [Recovered/Resolved]
  - Glossoptosis [Recovered/Resolved]
  - Altered state of consciousness [Recovered/Resolved]
